FAERS Safety Report 8502851-0 (Version None)
Quarter: 2012Q3

REPORT INFORMATION
  Report Type: 
  Country: None (occurrence: None)
  Receive Date: 20120705
  Receipt Date: 20120705
  Transmission Date: 20120928
  Serious: Yes (Other)
  Sender: FDA-Public Use
  Company Number: None

PATIENT
  Sex: Female

DRUGS (1)
  1. ULORIC [Suspect]
     Indication: GOUT
     Dosage: 80 MG ONCE A DAY PO
     Route: 048
     Dates: start: 20120614, end: 20120702

REACTIONS (2)
  - STOMATITIS [None]
  - NASAL DISCOMFORT [None]
